FAERS Safety Report 4716093-8 (Version None)
Quarter: 2005Q3

REPORT INFORMATION
  Report Type: 
  Country: None (occurrence: None)
  Receive Date: 20050718
  Receipt Date: 20040105
  Transmission Date: 20060218
  Serious: Yes (Hospitalization, Other)
  Sender: FDA-Public Use
  Company Number: AU-ABBOTT-04P-008-0246233-00

PATIENT
  Sex: Female
  Weight: 55 kg

DRUGS (19)
  1. HUMIRA [Suspect]
     Indication: CROHN'S DISEASE
     Route: 058
     Dates: start: 20031218, end: 20031218
  2. ISONIAZID [Concomitant]
     Indication: TUBERCULOSIS PROPHYLAXIS
     Dates: start: 20031209, end: 20040113
  3. PYRIDOXINE HCL [Concomitant]
     Indication: TUBERCULOSIS PROPHYLAXIS
     Dates: start: 20031209
  4. MAXALON [Concomitant]
     Indication: NAUSEA
     Dates: start: 20031212
  5. MESALAMINE [Concomitant]
     Indication: CROHN'S DISEASE
     Dates: start: 20010301, end: 20010701
  6. AZATHIOPRINE [Concomitant]
     Indication: CROHN'S DISEASE
     Dates: start: 20010601, end: 20010901
  7. METHOTREXATE [Concomitant]
     Indication: CROHN'S DISEASE
     Dates: start: 20021101, end: 20030201
  8. PREDNISOLONE [Concomitant]
     Indication: CROHN'S DISEASE
     Dates: start: 20010301, end: 20021101
  9. DEXAMETHASONE [Concomitant]
     Indication: ARTHRALGIA
     Dates: start: 20040106, end: 20040106
  10. DEXAMETHASONE [Concomitant]
     Dates: start: 20040107, end: 20040107
  11. DEXAMETHASONE [Concomitant]
     Dates: start: 20040108, end: 20040108
  12. DEXAMETHASONE [Concomitant]
     Dates: start: 20040105, end: 20050105
  13. MORPHINE [Concomitant]
     Indication: ARTHRALGIA
     Dates: start: 20050105, end: 20050105
  14. ACETAMINOPHEN W/ CODEINE [Concomitant]
     Indication: ARTHRALGIA
     Dates: start: 20040103
  15. ACETAMINOPHEN W/ CODEINE [Concomitant]
     Indication: ABDOMINAL PAIN
  16. CODEINE PHOSPHATE [Concomitant]
     Indication: ARTHRALGIA
     Dates: start: 20040103, end: 20050103
  17. MARCAINE HCL W/ EPINEPHRINE [Concomitant]
     Indication: BURSITIS
     Dosage: 25%/1:400,000
     Route: 050
     Dates: start: 20031127, end: 20031127
  18. CELESTONA BIFAS [Concomitant]
     Indication: BURSITIS
     Dates: start: 20031127, end: 20031127
  19. ESOMEPRAZOLE [Concomitant]
     Indication: CHEST DISCOMFORT
     Dates: start: 20040205, end: 20040215

REACTIONS (2)
  - DEHYDRATION [None]
  - SERUM SICKNESS [None]
